FAERS Safety Report 25896726 (Version 1)
Quarter: 2025Q4

REPORT INFORMATION
  Report Type: Spontaneous
  Country: JP (occurrence: JP)
  Receive Date: 20251008
  Receipt Date: 20251008
  Transmission Date: 20260118
  Serious: Yes (Death, Other)
  Sender: AMGEN
  Company Number: JP-AMGEN-JPNSP2025195738

PATIENT

DRUGS (2)
  1. BEVACIZUMAB [Suspect]
     Active Substance: BEVACIZUMAB
     Indication: Hepatocellular carcinoma
     Dosage: 15 MILLIGRAM/KILOGRAM BODY WEIGHT
     Route: 040
  2. ATEZOLIZUMAB [Concomitant]
     Active Substance: ATEZOLIZUMAB
     Indication: Hepatocellular carcinoma
     Dosage: 1200 MILLIGRAM, Q3WK
     Route: 040

REACTIONS (12)
  - Death [Fatal]
  - Hepatocellular carcinoma [Unknown]
  - Immune-mediated hepatic disorder [Unknown]
  - Immune-mediated adverse reaction [Unknown]
  - Adverse event [Unknown]
  - Therapy partial responder [Unknown]
  - Proteinuria [Unknown]
  - Hypertension [Unknown]
  - Thyroid disorder [Unknown]
  - Diarrhoea [Unknown]
  - Infusion related reaction [Unknown]
  - Off label use [Unknown]
